FAERS Safety Report 5124542-9 (Version None)
Quarter: 2006Q3

REPORT INFORMATION
  Report Type: 
  Country: None (occurrence: None)
  Receive Date: 20060821
  Receipt Date: 20060426
  Transmission Date: 20061208
  Serious: No
  Sender: FDA-Public Use
  Company Number: TPA2006A00732

PATIENT
  Age: 62 Year
  Sex: Female
  Weight: 56.6996 kg

DRUGS (4)
  1. ROZEREM [Suspect]
     Indication: INSOMNIA
     Dosage: 8 MG, HS, PER ORAL
     Route: 048
     Dates: start: 20060425, end: 20060426
  2. FOLIC ACID (FOLIC ACID) (1 MILLIGRAM) [Concomitant]
  3. CALCIUM (CALCIUM) [Concomitant]
  4. VITAMIN D [Concomitant]

REACTIONS (4)
  - ABNORMAL SENSATION IN EYE [None]
  - FEAR [None]
  - HEADACHE [None]
  - PALPITATIONS [None]
